FAERS Safety Report 17819694 (Version 1)
Quarter: 2020Q2

REPORT INFORMATION
  Report Type: Spontaneous
  Country: US (occurrence: US)
  Receive Date: 20200524
  Receipt Date: 20200524
  Transmission Date: 20200714
  Serious: No
  Sender: FDA-Public Use
  Company Number: US-AMGEN-USASP2020082454

PATIENT
  Sex: Female

DRUGS (12)
  1. ENBREL [Suspect]
     Active Substance: ETANERCEPT
     Indication: PSORIATIC ARTHROPATHY
  2. TRAZODONE HYDROCHLORIDE. [Concomitant]
     Active Substance: TRAZODONE HYDROCHLORIDE
     Dosage: UNK (POW)
  3. ENBREL [Suspect]
     Active Substance: ETANERCEPT
     Indication: RHEUMATOID ARTHRITIS
     Dosage: 50 MILLIGRAM, QWK
     Route: 058
  4. FOLIC ACID. [Concomitant]
     Active Substance: FOLIC ACID
     Dosage: UNK (POW)
  5. METHOTREXATE. [Concomitant]
     Active Substance: METHOTREXATE
     Dosage: 2.5 MILLIGRAM
  6. BUTALBITAL [Concomitant]
     Active Substance: BUTALBITAL
     Dosage: UNK (POW)
  7. KETOROLAC TROMETAMINE [Concomitant]
     Active Substance: KETOROLAC TROMETHAMINE
     Dosage: UNK (POW)
  8. VICODIN [Concomitant]
     Active Substance: ACETAMINOPHEN\HYDROCODONE BITARTRATE
     Dosage: UNK (5-300MG)
  9. ALPRAZOLAM. [Concomitant]
     Active Substance: ALPRAZOLAM
     Dosage: UNK (POW)
  10. TOPAMAX [Concomitant]
     Active Substance: TOPIRAMATE
     Dosage: 200 MILLIGRAM
  11. FOSAMAX [Concomitant]
     Active Substance: ALENDRONATE SODIUM
     Dosage: 70 MILLIGRAM
  12. MS CONTIN [Concomitant]
     Active Substance: MORPHINE SULFATE
     Dosage: 15 MILLIGRAM (TBC)

REACTIONS (1)
  - Product dose omission [Unknown]
